FAERS Safety Report 26069622 (Version 1)
Quarter: 2025Q4

REPORT INFORMATION
  Report Type: Spontaneous
  Country: US (occurrence: None)
  Receive Date: 20251119
  Receipt Date: 20251119
  Transmission Date: 20260117
  Serious: Yes (Other)
  Sender: FDA-CTU
  Company Number: None

PATIENT
  Age: 34 Year
  Sex: Male
  Weight: 120.15 kg

DRUGS (1)
  1. VYEPTI [Suspect]
     Active Substance: EPTINEZUMAB-JJMR
     Indication: Migraine
     Dosage: OTHER FREQUENCY : EVERY 3 MONTHS;?
     Route: 042

REACTIONS (4)
  - Infusion related reaction [None]
  - Fatigue [None]
  - Dyspnoea [None]
  - Therapy cessation [None]

NARRATIVE: CASE EVENT DATE: 20250825
